FAERS Safety Report 6917216-2 (Version None)
Quarter: 2010Q3

REPORT INFORMATION
  Report Type: 
  Country: None (occurrence: None)
  Receive Date: 20100810
  Receipt Date: 20100802
  Transmission Date: 20110219
  Serious: Yes (Hospitalization)
  Sender: FDA-Public Use
  Company Number: TW-MILLENNIUM PHARMACEUTICALS, INC.-2010-03957

PATIENT

DRUGS (4)
  1. VELCADE [Suspect]
     Indication: MULTIPLE MYELOMA
     Dosage: 2 MG, CYCLIC
     Dates: start: 20091002, end: 20100702
  2. MELPHALAN [Suspect]
     Indication: MULTIPLE MYELOMA
     Dosage: 14 MG, CYCLIC
     Dates: start: 20091002, end: 20100705
  3. DEXAMETHASONE [Suspect]
     Indication: MULTIPLE MYELOMA
     Dosage: 40 MG, CYCLIC
     Dates: start: 20091002, end: 20100705
  4. ZOMETA [Concomitant]
     Dosage: UNK
     Dates: start: 20100611

REACTIONS (1)
  - HEPATIC NEOPLASM MALIGNANT [None]
